FAERS Safety Report 21227717 (Version 3)
Quarter: 2022Q4

REPORT INFORMATION
  Report Type: Spontaneous
  Country: JP (occurrence: JP)
  Receive Date: 20220818
  Receipt Date: 20221101
  Transmission Date: 20230113
  Serious: No
  Sender: FDA-Public Use
  Company Number: JP-GSK-JP2022JPN119108

PATIENT

DRUGS (7)
  1. SOTROVIMAB [Suspect]
     Active Substance: SOTROVIMAB
     Indication: COVID-19
     Dosage: 500 MG/DAY
     Route: 041
     Dates: start: 20220810, end: 20220810
  2. MAGNESIUM OXIDE [Suspect]
     Active Substance: MAGNESIUM OXIDE
     Indication: Constipation
     Dosage: 1500 MG/DAY
     Route: 048
     Dates: start: 20220307
  3. SODIUM PICOSULFATE [Suspect]
     Active Substance: SODIUM PICOSULFATE
     Indication: Constipation
     Dosage: 10 TO 15 DROPS WHEN CONSTIPATION OCCURRED
     Route: 048
     Dates: start: 20220307
  4. ACETAMINOPHEN [Suspect]
     Active Substance: ACETAMINOPHEN
     Indication: Headache
     Dosage: 400 MG PER DOSE WHEN HEADACHE OCCURRED
     Route: 048
     Dates: start: 20220307
  5. FERROUS SULFATE [Suspect]
     Active Substance: FERROUS SULFATE
     Indication: Anaemia
     Dosage: 105 MG/DAY
     Route: 048
     Dates: start: 20220523
  6. HERBALS [Suspect]
     Active Substance: HERBALS
     Indication: Oedema
     Dosage: 9 G/DAY
     Route: 048
     Dates: start: 20220803
  7. DEXTROMETHORPHAN HYDROBROMIDE [Suspect]
     Active Substance: DEXTROMETHORPHAN HYDROBROMIDE
     Indication: Cough
     Dosage: 90 MG/DAY
     Route: 048
     Dates: start: 20220810

REACTIONS (2)
  - Exposure during pregnancy [Unknown]
  - Live birth [Unknown]
